FAERS Safety Report 10844817 (Version 1)
Quarter: 2015Q1

REPORT INFORMATION
  Report Type: Spontaneous
  Country: FR (occurrence: FR)
  Receive Date: 20150220
  Receipt Date: 20150220
  Transmission Date: 20150721
  Serious: Yes (Hospitalization)
  Sender: FDA-Public Use
  Company Number: FR-TEVA-541023ISR

PATIENT
  Age: 77 Year
  Sex: Male
  Weight: 73 kg

DRUGS (1)
  1. OXALIPLATINE TEVA [Suspect]
     Active Substance: OXALIPLATIN
     Indication: PANCREATIC CARCINOMA
     Route: 041
     Dates: start: 20150126, end: 20150126

REACTIONS (6)
  - Abdominal pain [Recovered/Resolved]
  - Hyperhidrosis [Recovered/Resolved]
  - Hypotension [Recovered/Resolved]
  - Hot flush [Recovered/Resolved]
  - Erythema [Recovered/Resolved]
  - Hypothermia [Recovered/Resolved]

NARRATIVE: CASE EVENT DATE: 20150126
